FAERS Safety Report 9167967 (Version 3)
Quarter: 2013Q2

REPORT INFORMATION
  Report Type: Spontaneous
  Country: IE (occurrence: IE)
  Receive Date: 20130318
  Receipt Date: 20130422
  Transmission Date: 20140414
  Serious: No
  Sender: FDA-Public Use
  Company Number: IE-GE HEALTHCARE MEDICAL DIAGNOSTICS-VISP-NO-1303S-0449

PATIENT
  Age: 68 Year
  Sex: Male

DRUGS (2)
  1. VISIPAQUE [Suspect]
     Indication: PRODUCT USED FOR UNKNOWN INDICATION
     Route: 042
     Dates: start: 20130307, end: 20130307
  2. VISIPAQUE [Suspect]
     Indication: DIAGNOSTIC PROCEDURE

REACTIONS (2)
  - Contrast media allergy [Recovered/Resolved]
  - Urticaria [Recovered/Resolved]
